FAERS Safety Report 23831803 (Version 2)
Quarter: 2024Q2

REPORT INFORMATION
  Report Type: Report from Study
  Country: US (occurrence: None)
  Receive Date: 20240508
  Receipt Date: 20240528
  Transmission Date: 20240716
  Serious: Yes (Other)
  Sender: FDA-Public Use
  Company Number: 2024A103226

PATIENT
  Sex: Male

DRUGS (1)
  1. LYNPARZA [Suspect]
     Active Substance: OLAPARIB
     Dosage: UNKNOWN
     Route: 048

REACTIONS (5)
  - Cellulitis [Recovered/Resolved]
  - Contusion [Unknown]
  - Pain [Unknown]
  - Haemorrhage [Unknown]
  - Physical product label issue [Unknown]
